FAERS Safety Report 24621455 (Version 1)
Quarter: 2024Q4

REPORT INFORMATION
  Report Type: Spontaneous
  Country: US (occurrence: US)
  Receive Date: 20241114
  Receipt Date: 20241114
  Transmission Date: 20250114
  Serious: Yes (Other)
  Sender: ELI LILLY AND COMPANY
  Company Number: US-ELI_LILLY_AND_COMPANY-US202411002899

PATIENT
  Age: 60 Year

DRUGS (1)
  1. EMGALITY [Suspect]
     Active Substance: GALCANEZUMAB-GNLM
     Indication: Migraine
     Dosage: 240 MG, SINGLE (LOADING DOSE)
     Route: 058
     Dates: start: 20241015

REACTIONS (5)
  - Vertigo [Recovered/Resolved]
  - Feeling abnormal [Unknown]
  - Neck pain [Unknown]
  - Drug ineffective [Unknown]
  - Injection site pain [Recovered/Resolved]

NARRATIVE: CASE EVENT DATE: 20241015
